FAERS Safety Report 14334263 (Version 4)
Quarter: 2018Q1

REPORT INFORMATION
  Report Type: Spontaneous
  Country: DE (occurrence: DE)
  Receive Date: 20171228
  Receipt Date: 20180118
  Transmission Date: 20180509
  Serious: Yes (Death, Life-Threatening, Hospitalization, Other)
  Sender: FDA-Public Use
  Company Number: DE-ABBVIE-17P-062-2205707-00

PATIENT
  Age: 57 Year
  Sex: Male
  Weight: 86 kg

DRUGS (1)
  1. MAVIRET [Suspect]
     Active Substance: GLECAPREVIR\PIBRENTASVIR
     Indication: HEPATITIS C
     Dosage: 100/40MG (3 TABS DAILY)
     Route: 048
     Dates: start: 20171111, end: 20171216

REACTIONS (24)
  - Ventricular fibrillation [Unknown]
  - Pulmonary oedema [Not Recovered/Not Resolved]
  - Thrombocytopenia [Unknown]
  - Acute myocardial infarction [Unknown]
  - Post procedural haemorrhage [Recovered/Resolved]
  - Lower respiratory tract congestion [Unknown]
  - Sepsis [Unknown]
  - Lactic acidosis [Not Recovered/Not Resolved]
  - Hyperbilirubinaemia [Unknown]
  - Anaemia [Unknown]
  - Coronary artery disease [Unknown]
  - Respiratory failure [Unknown]
  - Blood test abnormal [Unknown]
  - Pneumonia [Unknown]
  - Cardiovascular disorder [Unknown]
  - Ventricular fibrillation [Unknown]
  - Blood catecholamines decreased [Unknown]
  - Blood lactic acid increased [Unknown]
  - Myoglobinaemia [Unknown]
  - Rhabdomyolysis [Unknown]
  - Cardiogenic shock [Fatal]
  - Renal failure [Unknown]
  - Pneumothorax [Unknown]
  - Pleural effusion [Unknown]

NARRATIVE: CASE EVENT DATE: 201712
